FAERS Safety Report 5175226-2 (Version None)
Quarter: 2006Q4

REPORT INFORMATION
  Report Type: 
  Country: None (occurrence: None)
  Receive Date: 20061206
  Receipt Date: 20061123
  Transmission Date: 20070319
  Serious: Yes (Hospitalization)
  Sender: FDA-Public Use
  Company Number: SPV1-2006-01828

PATIENT
  Age: 70 Year
  Sex: Female

DRUGS (4)
  1. ANAGRELIDE HCL [Suspect]
     Indication: THROMBOCYTHAEMIA
     Dosage: 0.5 MG, 4 TABLETS DAILY, ORAL
     Route: 048
     Dates: start: 20051001
  2. VASTAREL (TRIMETAZIDINE HYDROCHLORIDE) [Concomitant]
  3. SOTALOL HCL [Concomitant]
  4. COZAAR [Concomitant]

REACTIONS (2)
  - ENCEPHALOPATHY [None]
  - PYRAMIDAL TRACT SYNDROME [None]
